FAERS Safety Report 9717917 (Version 1)
Quarter: 2013Q4

REPORT INFORMATION
  Report Type: Spontaneous
  Country: US (occurrence: US)
  Receive Date: 20131125
  Receipt Date: 20131125
  Transmission Date: 20140711
  Serious: No
  Sender: FDA-Public Use
  Company Number: US-VIVUS-2013V1000315

PATIENT
  Age: 58 Year
  Sex: Female
  Weight: 88.53 kg

DRUGS (5)
  1. QSYMIA 3.75MG/23MG [Suspect]
     Indication: WEIGHT DECREASED
     Route: 048
     Dates: start: 201304, end: 201304
  2. QSYMIA 7.5MG/46MG [Suspect]
     Indication: WEIGHT DECREASED
     Route: 048
     Dates: start: 201304
  3. WELLBUTRIN [Concomitant]
     Indication: PRODUCT USED FOR UNKNOWN INDICATION
     Route: 048
  4. GLAUCOMA EYE DROPS [Concomitant]
     Indication: GLAUCOMA
     Route: 047
  5. GLAUCOMA EYE DROPS [Concomitant]
     Indication: PROPHYLAXIS

REACTIONS (3)
  - Gastrooesophageal reflux disease [Unknown]
  - Insomnia [Unknown]
  - Dysgeusia [Unknown]
